FAERS Safety Report 18646610 (Version 1)
Quarter: 2020Q4

REPORT INFORMATION
  Report Type: Spontaneous
  Country: FR (occurrence: FR)
  Receive Date: 20201222
  Receipt Date: 20201222
  Transmission Date: 20210114
  Serious: Yes (Hospitalization, Other)
  Sender: FDA-Public Use
  Company Number: FR-AUROBINDO-AUR-APL-2020-062142

PATIENT
  Age: 63 Year
  Sex: Male

DRUGS (11)
  1. VALACYCLOVIR [Suspect]
     Active Substance: VALACYCLOVIR HYDROCHLORIDE
     Indication: HERPES SIMPLEX
     Dosage: 1000 MILLIGRAM, ONCE A DAY
     Route: 048
     Dates: start: 20181005
  2. ETOPOSIDE. [Suspect]
     Active Substance: ETOPOSIDE
     Indication: CHRONIC LYMPHOCYTIC LEUKAEMIA
     Dosage: 200 MILLIGRAM, ONCE A DAY
     Route: 042
     Dates: start: 20180926, end: 20180930
  3. METHOTREXATE. [Suspect]
     Active Substance: METHOTREXATE
     Indication: LYMPHOMA
     Dosage: 21/09, 27/09, 01/10, 09/10 ET 19/10
     Route: 037
     Dates: start: 20180921, end: 20181019
  4. ALLOPURINOL ARROW [Suspect]
     Active Substance: ALLOPURINOL
     Indication: TUMOUR LYSIS SYNDROME
     Dosage: 500 MILLIGRAM, ONCE A DAY
     Route: 048
     Dates: start: 20180926
  5. ATRIANCE [Suspect]
     Active Substance: NELARABINE
     Indication: CHRONIC LYMPHOCYTIC LEUKAEMIA
     Dosage: 1300 MILLIGRAM, ONCE A DAY
     Route: 042
     Dates: start: 20180926, end: 20180930
  6. CYCLOPHOSPHAMIDE. [Suspect]
     Active Substance: CYCLOPHOSPHAMIDE
     Indication: CHRONIC LYMPHOCYTIC LEUKAEMIA
     Dosage: 600 MILLIGRAM, ONCE A DAY
     Route: 042
     Dates: start: 20180926, end: 20180930
  7. NOXAFIL [Suspect]
     Active Substance: POSACONAZOLE
     Indication: INFECTION PROPHYLAXIS
     Dosage: 300 MG X 2/J PDT 2 JOURS PUIS 300 MG/J
     Route: 048
     Dates: start: 20181005
  8. YDRALBUM [Concomitant]
     Active Substance: ALBUMIN HUMAN
     Indication: PRODUCT USED FOR UNKNOWN INDICATION
     Dosage: UNK
     Route: 065
  9. CORTANCYL [Suspect]
     Active Substance: PREDNISONE
     Indication: PROPHYLAXIS OF NAUSEA AND VOMITING
     Dosage: 120 MG/J ? DOSE R?GRESSIVE JUSQU^? 40 MG/J
     Route: 048
     Dates: start: 20180921
  10. CYTARABINE. [Suspect]
     Active Substance: CYTARABINE
     Indication: CHRONIC LYMPHOCYTIC LEUKAEMIA
     Dosage: 21/09, 27/09, 01/10, 09/10 ET 19/10
     Route: 037
     Dates: start: 20180921, end: 20181019
  11. VIALEBEX [Concomitant]
     Active Substance: ALBUMIN HUMAN
     Indication: PRODUCT USED FOR UNKNOWN INDICATION
     Dosage: UNK
     Route: 065

REACTIONS (2)
  - Oedema [Not Recovered/Not Resolved]
  - Neuropathy peripheral [Not Recovered/Not Resolved]

NARRATIVE: CASE EVENT DATE: 20181016
